FAERS Safety Report 10358896 (Version 1)
Quarter: 2014Q3

REPORT INFORMATION
  Report Type: Spontaneous
  Country: VE (occurrence: VE)
  Receive Date: 20140804
  Receipt Date: 20140804
  Transmission Date: 20150326
  Serious: Yes (Death, Hospitalization)
  Sender: FDA-Public Use
  Company Number: VE-BIOGENIDEC-2014BI076348

PATIENT
  Sex: Female
  Weight: 1 kg

DRUGS (1)
  1. TYSABRI [Suspect]
     Active Substance: NATALIZUMAB
     Indication: MATERNAL EXPOSURE TIMING UNSPECIFIED
     Route: 064
     Dates: start: 201111, end: 20131018

REACTIONS (4)
  - Congenital central nervous system anomaly [Fatal]
  - Respiratory distress [Fatal]
  - Fallot^s tetralogy [Fatal]
  - Cardiac disorder [Fatal]
